FAERS Safety Report 5927374-4 (Version None)
Quarter: 2008Q4

REPORT INFORMATION
  Report Type: 
  Country: None (occurrence: None)
  Receive Date: 20081022
  Receipt Date: 20081013
  Transmission Date: 20090506
  Serious: Yes (Other)
  Sender: FDA-Public Use
  Company Number: US-JNJCH-2008051886

PATIENT
  Age: 48 Year
  Sex: Female
  Weight: 47.6 kg

DRUGS (1)
  1. ROGAINE [Suspect]
     Indication: ALOPECIA
     Dosage: TEXT:AS DIRECTED TWICE DAILY
     Route: 061

REACTIONS (3)
  - ACCIDENTAL EXPOSURE [None]
  - CAUSTIC INJURY [None]
  - SKIN EXFOLIATION [None]
